FAERS Safety Report 5035896-6 (Version None)
Quarter: 2006Q2

REPORT INFORMATION
  Report Type: 
  Country: None (occurrence: None)
  Receive Date: 20060526
  Receipt Date: 20060316
  Transmission Date: 20061013
  Serious: Yes (Hospitalization)
  Sender: FDA-Public Use
  Company Number: WAES 0603USA02775

PATIENT
  Sex: Female

DRUGS (2)
  1. VYTORIN [Suspect]
     Indication: BLOOD CHOLESTEROL INCREASED
     Dosage: PO
     Route: 048
  2. COREG [Concomitant]

REACTIONS (2)
  - MUSCULAR WEAKNESS [None]
  - MYALGIA [None]
